FAERS Safety Report 8216877-8 (Version None)
Quarter: 2012Q1

REPORT INFORMATION
  Report Type: 
  Country: None (occurrence: None)
  Receive Date: 20120316
  Receipt Date: 20120312
  Transmission Date: 20120608
  Serious: Yes (Death)
  Sender: FDA-Public Use
  Company Number: US-ASTRAZENECA-2011SE11029

PATIENT
  Sex: Female

DRUGS (9)
  1. CLORAZEPATE DIPOTASSIUM [Concomitant]
  2. AMBIEN [Concomitant]
  3. PAXIL [Concomitant]
  4. ESTRIADOL [Concomitant]
  5. SEROQUEL [Suspect]
     Route: 048
     Dates: start: 20100201
  6. NORCO [Concomitant]
  7. SOMA [Concomitant]
  8. PROVENTIL [Concomitant]
  9. SEROQUEL [Suspect]
     Route: 048
     Dates: start: 20080401

REACTIONS (3)
  - CHRONIC OBSTRUCTIVE PULMONARY DISEASE [None]
  - MYOCARDIAL INFARCTION [None]
  - OESOPHAGEAL OBSTRUCTION [None]
